FAERS Safety Report 9887686 (Version 3)
Quarter: 2014Q1

REPORT INFORMATION
  Report Type: Report from Study
  Country: US (occurrence: US)
  Receive Date: 20140211
  Receipt Date: 20140307
  Transmission Date: 20141002
  Serious: Yes (Hospitalization)
  Sender: FDA-Public Use
  Company Number: US-JNJFOC-20140201781

PATIENT
  Age: 50 Year
  Sex: Female
  Weight: 125.65 kg

DRUGS (6)
  1. USTEKINUMAB [Suspect]
     Indication: PSORIASIS
     Route: 058
     Dates: start: 20101209, end: 20130128
  2. LISINOPRIL/HYDROCHLOROTHIAZIDE [Suspect]
     Indication: HYPERTENSION
     Dosage: EVERY A.M.
     Route: 048
  3. TOPROL [Suspect]
     Indication: HYPERTENSION
     Dosage: EVERY A.M.
     Route: 048
  4. BUSPIRONE [Concomitant]
     Indication: DEPRESSION
     Route: 065
  5. PROTONIX [Concomitant]
     Indication: GASTROOESOPHAGEAL REFLUX DISEASE
     Route: 065
  6. VITAMIN D [Concomitant]
     Indication: VITAMIN SUPPLEMENTATION
     Route: 065

REACTIONS (3)
  - Transient ischaemic attack [Recovered/Resolved]
  - Syncope [Unknown]
  - Urinary tract infection [Unknown]
